FAERS Safety Report 14593502 (Version 2)
Quarter: 2018Q2

REPORT INFORMATION
  Report Type: Report from Study
  Country: US (occurrence: US)
  Receive Date: 20180302
  Receipt Date: 20180406
  Transmission Date: 20180711
  Serious: Yes (Hospitalization)
  Sender: FDA-Public Use
  Company Number: US-JNJFOC-20161127705

PATIENT
  Sex: Female

DRUGS (11)
  1. VYTORIN [Concomitant]
     Active Substance: EZETIMIBE\SIMVASTATIN
     Dosage: 10-20 MG AT BED TIME
  2. VITAMIN D [Concomitant]
     Active Substance: CHOLECALCIFEROL
  3. PROZAC [Concomitant]
     Active Substance: FLUOXETINE HYDROCHLORIDE
  4. MINOCYCLINE [Concomitant]
     Active Substance: MINOCYCLINE\MINOCYCLINE HYDROCHLORIDE
  5. IMBRUVICA [Suspect]
     Active Substance: IBRUTINIB
     Indication: MANTLE CELL LYMPHOMA
     Route: 048
     Dates: start: 20160725
  6. ESOMEPRAZOLE [Concomitant]
     Active Substance: ESOMEPRAZOLE
  7. PROPRANOLOL [Concomitant]
     Active Substance: PROPRANOLOL HYDROCHLORIDE
  8. MULTIVITAMINS [Concomitant]
     Active Substance: VITAMINS
  9. LEVOTHYROXINE. [Concomitant]
     Active Substance: LEVOTHYROXINE
     Dosage: 88 MCG, QD
  10. FLUOXETINE [Concomitant]
     Active Substance: FLUOXETINE HYDROCHLORIDE
  11. NEXIUM [Concomitant]
     Active Substance: ESOMEPRAZOLE MAGNESIUM

REACTIONS (24)
  - Ingrowing nail [Recovering/Resolving]
  - Nail bed disorder [Unknown]
  - Contusion [Unknown]
  - Weight increased [Not Recovered/Not Resolved]
  - Protein total decreased [Unknown]
  - Nail bed bleeding [Not Recovered/Not Resolved]
  - Micturition urgency [Not Recovered/Not Resolved]
  - Diplopia [Not Recovered/Not Resolved]
  - Hypoacusis [Not Recovered/Not Resolved]
  - Nail disorder [Recovered/Resolved]
  - Memory impairment [Not Recovered/Not Resolved]
  - Sinusitis [Not Recovered/Not Resolved]
  - Arthropod bite [Not Recovered/Not Resolved]
  - Post procedural contusion [Unknown]
  - Dry mouth [Not Recovered/Not Resolved]
  - Dry skin [Recovering/Resolving]
  - Rash [Unknown]
  - Erythema [Not Recovered/Not Resolved]
  - Epistaxis [Not Recovered/Not Resolved]
  - Hyperkeratosis [Recovering/Resolving]
  - Urinary incontinence [Recovered/Resolved]
  - Asthenopia [Not Recovered/Not Resolved]
  - Vessel puncture site bruise [Unknown]
  - Onychoclasis [Unknown]

NARRATIVE: CASE EVENT DATE: 2016
